FAERS Safety Report 7506779-4 (Version None)
Quarter: 2011Q2

REPORT INFORMATION
  Report Type: 
  Country: None (occurrence: None)
  Receive Date: 20110526
  Receipt Date: 20110513
  Transmission Date: 20111010
  Serious: Yes (Death)
  Sender: FDA-Public Use
  Company Number: A0793137A

PATIENT
  Age: 42 Year
  Sex: Male
  Weight: 84.3 kg

DRUGS (7)
  1. TRICOR [Concomitant]
  2. FORTAMET [Concomitant]
  3. AVANDIA [Suspect]
     Route: 048
     Dates: start: 20040101, end: 20060201
  4. METFORMIN HCL [Concomitant]
  5. AVANDARYL [Suspect]
     Route: 048
     Dates: start: 20060201, end: 20070706
  6. LISINOPRIL [Concomitant]
  7. AMARYL [Concomitant]

REACTIONS (2)
  - MYOCARDIAL INFARCTION [None]
  - CARDIAC DISORDER [None]
